FAERS Safety Report 6898874-8 (Version None)
Quarter: 2010Q3

REPORT INFORMATION
  Report Type: 
  Country: None (occurrence: None)
  Receive Date: 20100802
  Receipt Date: 20071212
  Transmission Date: 20110219
  Serious: No
  Sender: FDA-Public Use
  Company Number: US-PFIZER INC-2007105705

PATIENT
  Sex: Female
  Weight: 82.55 kg

DRUGS (7)
  1. LYRICA [Suspect]
     Indication: FIBROMYALGIA
     Dosage: 5 EVERY 1 DAYS
     Route: 048
     Dates: start: 20070801
  2. CARISOPRODOL [Interacting]
  3. AMITRIPTYLINE HYDROCHLORIDE [Concomitant]
  4. OXYCONTIN [Concomitant]
  5. MULTI-VITAMINS [Concomitant]
  6. NAPROXEN [Concomitant]
  7. DILANTIN [Concomitant]

REACTIONS (2)
  - DRUG INTERACTION [None]
  - WEIGHT INCREASED [None]
